FAERS Safety Report 8960863 (Version 1)
Quarter: 2012Q4

REPORT INFORMATION
  Report Type: Report from Study
  Country: JP (occurrence: JP)
  Receive Date: 20121213
  Receipt Date: 20121213
  Transmission Date: 20130627
  Serious: Yes (Hospitalization)
  Sender: FDA-Public Use
  Company Number: JP-VERTEX PHARMACEUTICAL INC.-2012-020514

PATIENT
  Age: 59 Year
  Sex: Female

DRUGS (9)
  1. VX-950 (TELAPREVIR) [Suspect]
     Indication: HEPATITIS C
     Dosage: 1500 mg, qd
     Route: 048
     Dates: start: 20120302, end: 20120524
  2. RIBAVIRIN [Suspect]
     Indication: HEPATITIS C
     Dosage: 600 mg, qd
     Route: 048
     Dates: start: 20120302, end: 20120316
  3. RIBAVIRIN [Suspect]
     Dosage: 400 mg, qd
     Route: 048
     Dates: start: 20120317, end: 20120322
  4. RIBAVIRIN [Suspect]
     Dosage: 200 mg, qd
     Route: 048
     Dates: start: 20120323
  5. RIBAVIRIN [Suspect]
     Dosage: 400 mg, qd
     Route: 048
     Dates: end: 20120817
  6. PEGINTERFERON ALFA-2B [Concomitant]
     Dosage: 1.5 ug/kg, qw
     Route: 058
     Dates: start: 20120302, end: 20120810
  7. GASTER [Concomitant]
     Dosage: 40 mg, qd
     Route: 048
     Dates: start: 20120305
  8. NAUZELIN [Concomitant]
     Dosage: 30 mg, qd
     Route: 048
     Dates: start: 20120305, end: 20120315
  9. NAUZELIN [Concomitant]
     Dosage: 30 mg, qd
     Route: 048
     Dates: end: 20120517

REACTIONS (1)
  - Pneumonia [Recovered/Resolved]
